FAERS Safety Report 14099739 (Version 1)
Quarter: 2017Q4

REPORT INFORMATION
  Report Type: Spontaneous
  Country: US (occurrence: US)
  Receive Date: 20171017
  Receipt Date: 20171017
  Transmission Date: 20180321
  Serious: No
  Sender: FDA-Public Use
  Company Number: US-SHIRE-US201722421

PATIENT

DRUGS (1)
  1. XIIDRA [Suspect]
     Active Substance: LIFITEGRAST
     Indication: PRODUCT USED FOR UNKNOWN INDICATION
     Dosage: 50 MG/1 ML
     Route: 047

REACTIONS (8)
  - Hyperaemia [Unknown]
  - Pruritus [Unknown]
  - Pain [Unknown]
  - Skin burning sensation [Unknown]
  - Dry eye [Unknown]
  - Visual impairment [Unknown]
  - Eye irritation [Unknown]
  - Blepharitis [Unknown]
